FAERS Safety Report 8199125-7 (Version None)
Quarter: 2012Q1

REPORT INFORMATION
  Report Type: 
  Country: None (occurrence: None)
  Receive Date: 20120306
  Receipt Date: 20120228
  Transmission Date: 20120608
  Serious: Yes (Other)
  Sender: FDA-Public Use
  Company Number: 1201-008

PATIENT
  Age: 83 Year
  Sex: Male

DRUGS (4)
  1. PRESERVISION (OCUVITE) [Concomitant]
  2. DORZOLAMIDE [Concomitant]
  3. EYLEA [Suspect]
     Indication: AGE-RELATED MACULAR DEGENERATION
     Dosage: 2 MG, 1 IN 1 M, INTRAVITREAL
     Dates: start: 20111206
  4. EYLEA [Suspect]

REACTIONS (6)
  - VITRITIS [None]
  - ENDOPHTHALMITIS [None]
  - CONJUNCTIVAL HAEMORRHAGE [None]
  - VITREOUS OPACITIES [None]
  - VITREOUS FLOATERS [None]
  - ANTERIOR CHAMBER INFLAMMATION [None]
